FAERS Safety Report 6255762-8 (Version None)
Quarter: 2009Q3

REPORT INFORMATION
  Report Type: 
  Country: None (occurrence: None)
  Receive Date: 20090701
  Receipt Date: 20090610
  Transmission Date: 20100115
  Serious: Yes (Life-Threatening, Hospitalization)
  Sender: FDA-Public Use
  Company Number: GB-DEXPHARM-20090859

PATIENT
  Age: 72 Year
  Sex: Male

DRUGS (12)
  1. OMEPRAZOLE [Suspect]
     Dosage: 20 MG, ORAL
     Route: 048
     Dates: start: 20060601
  2. SIMVASTATIN [Suspect]
     Indication: BLOOD CHOLESTEROL INCREASED
     Dosage: 80 MG, SEP. DOSAGES/INTERVAL: 1 IN 1 DAY, ORAL
     Route: 048
  3. AMOXICILLIN [Suspect]
     Dosage: 500 MG SEP. DOSAGES/INTERVAL: 3 IN 1 DAY, ORAL
     Route: 048
  4. CARBOPLATIN [Suspect]
     Dosage: 4/1 CYCLICAL
     Dates: start: 20060201
  5. GEMCITABINE [Suspect]
     Dosage: 4/1 CYCLICAL
     Dates: start: 20060201
  6. ASPIRIN [Concomitant]
  7. ATENOLOL [Concomitant]
  8. CHLORDIAZEPOXIDE [Concomitant]
  9. CIPROFLOXACIN [Concomitant]
  10. CLARITHROMYCIN [Concomitant]
  11. CORACTEN XL [Concomitant]
  12. GRANISTERON [Concomitant]

REACTIONS (3)
  - DRUG INTERACTION [None]
  - RENAL FAILURE ACUTE [None]
  - RHABDOMYOLYSIS [None]
